FAERS Safety Report 6489600-5 (Version None)
Quarter: 2009Q4

REPORT INFORMATION
  Report Type: 
  Country: None (occurrence: None)
  Receive Date: 20091210
  Receipt Date: 20091130
  Transmission Date: 20100525
  Serious: Yes (Other)
  Sender: FDA-Public Use
  Company Number: US-GILEAD-2009-0025677

PATIENT
  Sex: Male
  Weight: 80.54 kg

DRUGS (4)
  1. TRUVADA [Suspect]
     Indication: HIV INFECTION
     Route: 048
     Dates: start: 20090923
  2. RALTEGRAVIR [Suspect]
     Indication: HIV INFECTION
     Route: 048
     Dates: start: 20090923
  3. BACTRIM DS [Concomitant]
     Dates: start: 20090730
  4. AZITHROMYCIN [Concomitant]
     Dates: start: 20090731

REACTIONS (7)
  - ATELECTASIS [None]
  - IMMUNE RECONSTITUTION SYNDROME [None]
  - MEDIASTINAL MASS [None]
  - MYCOBACTERIUM AVIUM COMPLEX INFECTION [None]
  - NEPHROLITHIASIS [None]
  - PERICARDIAL EFFUSION [None]
  - RENAL CYST [None]
